FAERS Safety Report 5246612-7 (Version None)
Quarter: 2007Q1

REPORT INFORMATION
  Report Type: 
  Country: None (occurrence: None)
  Receive Date: 20070222
  Receipt Date: 20070222
  Transmission Date: 20070707
  Serious: Yes (Other)
  Sender: FDA-Public Use
  Company Number: None

PATIENT
  Age: 66 Year
  Sex: Female
  Weight: 62.5964 kg

DRUGS (3)
  1. ACTONEL [Suspect]
     Indication: OSTEOPENIA
     Dosage: 35 MG ONCE A WEEK PO
     Route: 048
     Dates: start: 20050401, end: 20061031
  2. ACTONEL [Suspect]
     Indication: OSTEOPOROSIS
     Dosage: 35 MG ONCE A WEEK PO
     Route: 048
     Dates: start: 20050401, end: 20061031
  3. EVISTA [Concomitant]

REACTIONS (17)
  - ACCIDENTAL OVERDOSE [None]
  - ARRHYTHMIA [None]
  - BLOOD PRESSURE INCREASED [None]
  - DIZZINESS [None]
  - FATIGUE [None]
  - FEELING ABNORMAL [None]
  - FINGER DEFORMITY [None]
  - HEAD DISCOMFORT [None]
  - HEADACHE [None]
  - HEART RATE INCREASED [None]
  - JOINT RANGE OF MOTION DECREASED [None]
  - MUSCULOSKELETAL PAIN [None]
  - NECK PAIN [None]
  - PAIN IN EXTREMITY [None]
  - PAIN OF SKIN [None]
  - POOR QUALITY SLEEP [None]
  - PYREXIA [None]
